FAERS Safety Report 4626482-8 (Version None)
Quarter: 2005Q1

REPORT INFORMATION
  Report Type: 
  Country: None (occurrence: None)
  Receive Date: 20050330
  Receipt Date: 20050316
  Transmission Date: 20050727
  Serious: Yes (Other)
  Sender: FDA-Public Use
  Company Number: US_0503114400

PATIENT
  Age: 45 Year
  Sex: Male

DRUGS (1)
  1. FORTEO [Suspect]
     Dates: start: 20040101

REACTIONS (4)
  - BLOOD FOLATE DECREASED [None]
  - CONVULSION [None]
  - COORDINATION ABNORMAL [None]
  - INADEQUATE DIET [None]
